FAERS Safety Report 23749845 (Version 1)
Quarter: 2024Q2

REPORT INFORMATION
  Report Type: Spontaneous
  Country: US (occurrence: US)
  Receive Date: 20240417
  Receipt Date: 20240417
  Transmission Date: 20240715
  Serious: Yes (Hospitalization)
  Sender: FDA-Public Use
  Company Number: US-IHL-000526

PATIENT
  Age: 68 Year
  Sex: Male

DRUGS (3)
  1. FLUOXETINE HYDROCHLORIDE [Suspect]
     Active Substance: FLUOXETINE HYDROCHLORIDE
     Indication: Depressive symptom
     Route: 065
     Dates: start: 202308
  2. PRAZOSIN [Suspect]
     Active Substance: PRAZOSIN
     Indication: Depressive symptom
     Route: 065
     Dates: start: 202308
  3. BUPROPION\DEXTROMETHORPHAN [Suspect]
     Active Substance: BUPROPION\DEXTROMETHORPHAN
     Indication: Depressive symptom
     Route: 065
     Dates: start: 202308

REACTIONS (5)
  - Toxicity to various agents [Recovering/Resolving]
  - Urinary tract infection [Recovering/Resolving]
  - Encephalopathy [Recovering/Resolving]
  - Drug interaction [Recovering/Resolving]
  - Serotonin syndrome [Recovering/Resolving]
